FAERS Safety Report 7725587-2 (Version None)
Quarter: 2011Q3

REPORT INFORMATION
  Report Type: 
  Country: None (occurrence: None)
  Receive Date: 20110830
  Receipt Date: 20110815
  Transmission Date: 20111222
  Serious: Yes (Hospitalization)
  Sender: FDA-Public Use
  Company Number: TRAZ20110010

PATIENT
  Age: 75 Year
  Sex: Male

DRUGS (10)
  1. FORMETIC (METFORMIN HYDROCHLORIDE) (METFORMIN HYDROCHLORIDE) [Concomitant]
  2. RAWEL (INDAPAMIDE) (INDAPAMIDE) [Concomitant]
  3. PROMAZINE (PROMAZINE) (PROMAZINE) [Concomitant]
  4. ACARD (ACETYLSALICYLIC ACID) (ACETYLSALICYLIC ACID) [Concomitant]
  5. HALOPERIDOL (HALOPERIDOL) (HALOPERIDOL) [Concomitant]
  6. GLIBETIC (GLIBENCLAMIDE) (GLIBENCLAMIDE) [Concomitant]
  7. PRESTARIUM (PERINDOPRIL) (PERINDOPRIL) [Concomitant]
  8. TRAZODONE HYDROCHLORIDE [Suspect]
     Indication: ABNORMAL BEHAVIOUR
     Dosage: 37.5 MG, ORAL ; 75 MG, ORAL
     Route: 048
  9. TRAZODONE HYDROCHLORIDE [Suspect]
     Indication: INSOMNIA
     Dosage: 37.5 MG, ORAL ; 75 MG, ORAL
     Route: 048
  10. CLONAZEPAM [Concomitant]

REACTIONS (1)
  - SEROTONIN SYNDROME [None]
